FAERS Safety Report 21053529 (Version 4)
Quarter: 2023Q4

REPORT INFORMATION
  Report Type: Report from Study
  Country: SG (occurrence: None)
  Receive Date: 20220707
  Receipt Date: 20231025
  Transmission Date: 20240109
  Serious: Yes (Hospitalization)
  Sender: FDA-Public Use
  Company Number: SG-ROCHE-3130084

PATIENT
  Age: 79 Year
  Sex: Male
  Weight: 54.3 kg

DRUGS (11)
  1. RITUXIMAB [Suspect]
     Active Substance: RITUXIMAB
     Indication: Diffuse large B-cell lymphoma
     Dosage: ON 09/MAR/2022, RECEIVED LAST DOSE CYCLE 6 OF RITUXIMAB PRIOR TO SERIOUS ADVERSE EVENT (SAE)
     Route: 041
     Dates: start: 20211123
  2. BENDAMUSTINE [Suspect]
     Active Substance: BENDAMUSTINE
     Indication: Diffuse large B-cell lymphoma
     Route: 042
     Dates: start: 20211123
  3. BENDAMUSTINE [Suspect]
     Active Substance: BENDAMUSTINE
     Dosage: ON 10/MAR/2022, RECEIVED LAST DOSE CYCLE 6 OF BENDAMUSTINE PRIOR TO SERIOUS ADVERSE EVENT (SAE)
     Route: 042
  4. ZOVIRAX [Concomitant]
     Active Substance: ACYCLOVIR
  5. ALFUZOSIN HYDROCHLORIDE [Concomitant]
     Active Substance: ALFUZOSIN HYDROCHLORIDE
     Dates: start: 20220404
  6. AMLODIPINE [Concomitant]
     Active Substance: AMLODIPINE BESYLATE
  7. COTRIMOXAZOLE [Concomitant]
     Active Substance: SULFAMETHOXAZOLE\TRIMETHOPRIM
     Dates: start: 20220404
  8. FILGRASTIM [Concomitant]
     Active Substance: FILGRASTIM
  9. POLYETHYLENE GLYCOL 4000 [Concomitant]
     Active Substance: POLYETHYLENE GLYCOL 4000
  10. ACTRAPID [Concomitant]
     Active Substance: INSULIN HUMAN
     Dates: start: 20220618, end: 20220618
  11. CODEINE PHOSPHATE\PROMETHAZINE HYDROCHLORIDE [Concomitant]
     Active Substance: CODEINE PHOSPHATE\PROMETHAZINE HYDROCHLORIDE
     Dates: start: 20220621, end: 20220628

REACTIONS (1)
  - COVID-19 [Recovered/Resolved]

NARRATIVE: CASE EVENT DATE: 20220617
